FAERS Safety Report 4416851-3 (Version None)
Quarter: 2004Q3

REPORT INFORMATION
  Report Type: 
  Country: None (occurrence: None)
  Receive Date: 20040802
  Receipt Date: 20040713
  Transmission Date: 20050211
  Serious: Yes (Death)
  Sender: FDA-Public Use
  Company Number: A-US2004-06725

PATIENT
  Age: 80 Year
  Sex: Female
  Weight: 60.3 kg

DRUGS (26)
  1. TRACLEER [Suspect]
     Indication: PULMONARY HYPERTENSION
     Dosage: 62.5 MG, BID, ORAL
     Route: 048
     Dates: start: 20040514, end: 20040613
  2. SINGULAIR [Concomitant]
  3. NEXIUM [Concomitant]
  4. PLAVIX [Concomitant]
  5. CORDARONE [Concomitant]
  6. ALBUTEROL [Concomitant]
  7. COMBIVENT (SALBUTAMOL SULFATE, IPRATROPIUM BROMIDE) [Concomitant]
  8. FLONASE [Concomitant]
  9. LEXAPRO [Concomitant]
  10. SYNTHROID [Concomitant]
  11. ADVAIR [Concomitant]
  12. PROAMATINE [Concomitant]
  13. MIDODRINE (MIDODRINE) [Concomitant]
  14. CARDIZEM [Concomitant]
  15. LASIX [Concomitant]
  16. FOSAMAX [Concomitant]
  17. XALATAN [Concomitant]
  18. PROCRIT (ERYTHROPOIETIN) [Concomitant]
  19. XANAX [Concomitant]
  20. LORTAB [Concomitant]
  21. VIOXX [Concomitant]
  22. SYNTHROID [Concomitant]
  23. CALCIUM (CALCIUM) [Concomitant]
  24. MULTI-VITAMINS VITAFIT (CALCIUM PANTOTHENATE, FOLIC ACID, VITAMINS NOS [Concomitant]
  25. AMIODARONE HCL [Concomitant]
  26. COLESTID [Concomitant]

REACTIONS (1)
  - OFF LABEL USE [None]
